FAERS Safety Report 9717847 (Version 1)
Quarter: 2013Q4

REPORT INFORMATION
  Report Type: Spontaneous
  Country: US (occurrence: US)
  Receive Date: 20131125
  Receipt Date: 20131125
  Transmission Date: 20140711
  Serious: No
  Sender: FDA-Public Use
  Company Number: US-VIVUS-2012V1000273

PATIENT
  Age: 60 Year
  Sex: Male
  Weight: 120.31 kg

DRUGS (5)
  1. QSYMIA 3.75MG/23MG [Suspect]
     Indication: WEIGHT DECREASED
     Dosage: DAILY DOSE: 1 CAPSULE,
     Route: 048
     Dates: start: 20121024, end: 20121031
  2. QSYMIA 3.75MG/23MG [Suspect]
     Dosage: DAILY DOSE: 2 CAPSULE,
     Route: 048
     Dates: start: 20121101, end: 20121107
  3. QSYMIA 11.25MG/69MG [Suspect]
     Indication: WEIGHT DECREASED
     Dosage: DAILY DOSE: 1 CAPSULE,
     Route: 048
     Dates: start: 20121108
  4. OXYCODONE [Suspect]
     Indication: PRODUCT USED FOR UNKNOWN INDICATION
     Dates: end: 20121126
  5. OXYCODONE [Suspect]
     Dates: start: 20121128

REACTIONS (2)
  - Hypersensitivity [Recovered/Resolved]
  - Incorrect dose administered [Recovered/Resolved]
